FAERS Safety Report 5631204-8 (Version None)
Quarter: 2008Q1

REPORT INFORMATION
  Report Type: 
  Country: None (occurrence: None)
  Receive Date: 20080131
  Receipt Date: 20071025
  Transmission Date: 20080703
  Serious: No
  Sender: FDA-Public Use
  Company Number: 163-21880-07101473

PATIENT
  Age: 57 Year
  Sex: Male
  Weight: 72.8023 kg

DRUGS (3)
  1. REVLIMID [Suspect]
     Indication: MULTIPLE MYELOMA
     Dosage: 15 MG, DAILY X 21 DAYS, ORAL; 25 MG DAILY X 21 DAYS ORAL; 3 MG DAILY X 21 DAYS ORAL
     Route: 048
     Dates: start: 20061218, end: 20070501
  2. REVLIMID [Suspect]
     Indication: MULTIPLE MYELOMA
     Dosage: 15 MG, DAILY X 21 DAYS, ORAL; 25 MG DAILY X 21 DAYS ORAL; 3 MG DAILY X 21 DAYS ORAL
     Route: 048
     Dates: start: 20070621, end: 20070901
  3. REVLIMID [Suspect]
     Indication: MULTIPLE MYELOMA
     Dosage: 15 MG, DAILY X 21 DAYS, ORAL; 25 MG DAILY X 21 DAYS ORAL; 3 MG DAILY X 21 DAYS ORAL
     Route: 048
     Dates: start: 20070918, end: 20071025

REACTIONS (3)
  - GASTROINTESTINAL PAIN [None]
  - MUSCLE SPASMS [None]
  - PYREXIA [None]
